FAERS Safety Report 19824085 (Version 2)
Quarter: 2021Q4

REPORT INFORMATION
  Report Type: Report from Study
  Country: US (occurrence: US)
  Receive Date: 20210913
  Receipt Date: 20211019
  Transmission Date: 20220303
  Serious: No
  Sender: FDA-Public Use
  Company Number: US-BOEHRINGERINGELHEIM-2021-BI-115077

PATIENT
  Age: 71 Year
  Sex: Male

DRUGS (2)
  1. OFEV [Suspect]
     Active Substance: NINTEDANIB
     Indication: Interstitial lung disease
     Dosage: OFEV DOSE 200MG DAILY
     Route: 048
     Dates: start: 20210629
  2. OFEV [Suspect]
     Active Substance: NINTEDANIB
     Indication: Idiopathic pulmonary fibrosis
     Route: 048
     Dates: start: 20211001

REACTIONS (14)
  - Abdominal pain [Not Recovered/Not Resolved]
  - Haematochezia [Not Recovered/Not Resolved]
  - Pyrexia [Unknown]
  - Illness [Unknown]
  - Cough [Not Recovered/Not Resolved]
  - Thoracic cavity drainage [Unknown]
  - Diarrhoea [Recovered/Resolved with Sequelae]
  - Dyspepsia [Unknown]
  - Flatulence [Unknown]
  - Abdominal pain upper [Recovered/Resolved]
  - Bowel movement irregularity [Recovered/Resolved]
  - Asthenia [Unknown]
  - Abdominal discomfort [Unknown]
  - Haemorrhoids [Unknown]

NARRATIVE: CASE EVENT DATE: 20210801
